FAERS Safety Report 14571448 (Version 1)
Quarter: 2018Q1

REPORT INFORMATION
  Report Type: Spontaneous
  Country: US (occurrence: US)
  Receive Date: 20180223
  Receipt Date: 20180223
  Transmission Date: 20180509
  Serious: No
  Sender: FDA-Public Use
  Company Number: None

PATIENT
  Age: 7 Month
  Sex: Male

DRUGS (1)
  1. ACTHAR [Suspect]
     Active Substance: CORTICOTROPIN

REACTIONS (6)
  - Pain [None]
  - Eye movement disorder [None]
  - Hypertension [None]
  - Crying [None]
  - Irritability [None]
  - Back pain [None]

NARRATIVE: CASE EVENT DATE: 20180218
